FAERS Safety Report 14187731 (Version 1)
Quarter: 2017Q4

REPORT INFORMATION
  Report Type: Spontaneous
  Country: US (occurrence: US)
  Receive Date: 20171114
  Receipt Date: 20171114
  Transmission Date: 20180321
  Serious: No
  Sender: FDA-Public Use
  Company Number: US-BAUSCH-BL-2017-023249

PATIENT
  Age: 43 Year
  Sex: Female

DRUGS (2)
  1. TRETINOIN CREAM 0.025% [Suspect]
     Active Substance: TRETINOIN
     Indication: THERAPEUTIC SKIN CARE TOPICAL
     Dosage: AS DIRECTED
     Route: 061
     Dates: start: 201706, end: 201706
  2. NU-DERM STARTER SET NORMAL-DRY SKIN TRANSFORMATION SYSTEM [Suspect]
     Active Substance: HYDROQUINONE\OCTINOXATE\OXYBENZONE\ZINC OXIDE
     Indication: THERAPEUTIC SKIN CARE TOPICAL
     Dosage: AS DIRECTED
     Route: 061
     Dates: start: 201706, end: 201706

REACTIONS (2)
  - Application site pruritus [Recovered/Resolved]
  - Application site erythema [Recovered/Resolved]

NARRATIVE: CASE EVENT DATE: 2017
